FAERS Safety Report 9894200 (Version 2)
Quarter: 2014Q1

REPORT INFORMATION
  Report Type: Report from Study
  Country: JP (occurrence: JP)
  Receive Date: 20140213
  Receipt Date: 20140213
  Transmission Date: 20141002
  Serious: Yes (Hospitalization)
  Sender: FDA-Public Use
  Company Number: JP-VERTEX PHARMACEUTICALS INC-AE-2012-010603

PATIENT
  Age: 68 Year
  Sex: Female

DRUGS (10)
  1. TELAVIC [Suspect]
     Indication: HEPATITIS C
     Dosage: 2250 MG, QD
     Route: 048
     Dates: start: 20120605, end: 20120709
  2. RIBAVIRIN [Suspect]
     Indication: HEPATITIS C
     Dosage: 600 MG, QD
     Route: 048
     Dates: start: 20120605, end: 20120626
  3. RIBAVIRIN [Suspect]
     Dosage: 400 MG, QD
     Route: 048
     Dates: start: 20120627, end: 20120702
  4. RIBAVIRIN [Suspect]
     Dosage: 200 MG, QD
     Route: 048
     Dates: start: 20120703, end: 20120709
  5. PEGINTERFERON ALFA 2-B [Concomitant]
     Dosage: 1.5 ?G/KG, QW
     Route: 058
     Dates: start: 20120605, end: 20120703
  6. LOBU [Concomitant]
     Dosage: UNK, PRN
     Route: 048
     Dates: start: 20120605, end: 20120709
  7. CLARITIN [Concomitant]
     Dosage: 10 MG, UNK
     Route: 048
     Dates: start: 20120610, end: 20120709
  8. FERROMIA [Concomitant]
     Dosage: 50 MG, UNK
     Route: 048
     Dates: start: 20120610, end: 20120709
  9. POSTERISAN [Concomitant]
     Dosage: UNK
     Route: 061
     Dates: start: 20120618, end: 20120709
  10. GASMOTIN [Concomitant]
     Dosage: 15 MG, UNK
     Route: 048
     Dates: start: 20120606, end: 20120612

REACTIONS (1)
  - Cerebral haemorrhage [Not Recovered/Not Resolved]
